FAERS Safety Report 10267097 (Version 2)
Quarter: 2014Q4

REPORT INFORMATION
  Report Type: Spontaneous
  Country: US (occurrence: None)
  Receive Date: 20140625
  Receipt Date: 20141204
  Transmission Date: 20150528
  Serious: Yes (Other)
  Sender: FDA-Public Use
  Company Number: US-RRD-14-00072

PATIENT
  Age: 40 Year
  Sex: Female

DRUGS (7)
  1. COLACE (DOCUSATE SODIUM) (DOCUSATE SODIUM) [Concomitant]
  2. BETAMETHASONE (BETAMETHASONE) (INJECTION) (BETAMETHASONE) [Concomitant]
  3. NIFEDIPINE (NIFEDIPINE) (NIFEDIPINE) [Concomitant]
     Active Substance: NIFEDIPINE
  4. BISACODYL (BISACODYL) (SUPPOSITORY) (BISACODYL) [Concomitant]
  5. INDOCIN [Suspect]
     Active Substance: INDOMETHACIN\INDOMETHACIN SODIUM
     Indication: ABDOMINAL PAIN
  6. SENNA (SENNA ALEXANDRIA) (SENNA ALEXANDRIA) [Concomitant]
  7. MAGNESIUM SULFATE (MAGNESIUM SULFATE) (MAGNESIUM SULFATE) [Concomitant]
     Active Substance: MAGNESIUM SULFATE

REACTIONS (9)
  - Pre-eclampsia [None]
  - Off label use [None]
  - Placenta accreta [None]
  - Blood pressure increased [None]
  - Constipation [None]
  - Uterine rupture [None]
  - Maternal exposure during pregnancy [None]
  - Liver function test abnormal [None]
  - Oligohydramnios [None]
